FAERS Safety Report 25115087 (Version 3)
Quarter: 2025Q1

REPORT INFORMATION
  Report Type: Spontaneous
  Country: US (occurrence: US)
  Receive Date: 20250324
  Receipt Date: 20250327
  Transmission Date: 20250409
  Serious: Yes (Other)
  Sender: PFIZER
  Company Number: US-PFIZER INC-202500058767

PATIENT
  Age: 76 Year
  Sex: Female

DRUGS (2)
  1. TIVDAK [Suspect]
     Active Substance: TISOTUMAB VEDOTIN-TFTV
     Indication: Transitional cell carcinoma
     Dosage: 110 MGS INFUSION EVERY 3 WEEKS
     Route: 042
  2. TIVDAK [Suspect]
     Active Substance: TISOTUMAB VEDOTIN-TFTV
     Dosage: 110.8 MG EVERY 21 DAYS

REACTIONS (3)
  - Transitional cell carcinoma [Unknown]
  - Malignant neoplasm progression [Unknown]
  - Off label use [Unknown]
